FAERS Safety Report 4888469-X (Version None)
Quarter: 2005Q4

REPORT INFORMATION
  Report Type: 
  Country: None (occurrence: None)
  Receive Date: 20051207
  Receipt Date: 20050817
  Transmission Date: 20060501
  Serious: Yes (Other)
  Sender: FDA-Public Use
  Company Number: 2005116889

PATIENT
  Sex: Male

DRUGS (13)
  1. VIAGRA [Suspect]
  2. TRUVADA [Suspect]
     Dates: start: 20050627
  3. DIFLUCAN (FLUCONAZOLE) [Concomitant]
  4. LIPITOR [Concomitant]
  5. BACTRIM DS [Concomitant]
  6. OXANDRIN [Concomitant]
  7. EFFEXOR XR [Concomitant]
  8. ANDROGEL [Concomitant]
  9. ENSURE PLUS (CARBOHYDRATES NOS, ELECTROLYTES NOS, FATTY ACIDS NOS, MIN [Concomitant]
  10. MARINOL [Concomitant]
  11. VIRACEPT [Concomitant]
  12. VIDEX [Concomitant]
  13. VALTREX [Concomitant]

REACTIONS (2)
  - BLINDNESS TRANSIENT [None]
  - TINNITUS [None]
